FAERS Safety Report 9287738 (Version 1)
Quarter: 2012Q4

REPORT INFORMATION
  Report Type: Spontaneous
  Country: US (occurrence: None)
  Receive Date: 20120926
  Receipt Date: 20120926
  Transmission Date: 20130627
  Serious: Yes (Hospitalization, Other)
  Sender: FDA-Public Use
  Company Number: 2012MPI00358

PATIENT
  Age: 37 Year
  Sex: Male

DRUGS (7)
  1. ADCETRIS (BRENTUXIMAB VEDOTIN) INJECTION [Suspect]
     Indication: ANAPLASTIC LARGE-CELL LYMPHOMA
     Route: 042
     Dates: start: 20110905, end: 20111118
  2. ADCETRIS (BRENTUXIMAB VEDOTIN) INJECTION [Suspect]
     Indication: ANAPLASTIC LARGE-CELL LYMPHOMA
     Route: 042
     Dates: start: 20111130
  3. LACTULOSE (LACTULOSE) [Concomitant]
  4. ACICLOVIR (ACICLOVIR SODIUM) [Concomitant]
  5. ALLOPURINOL (ALLOPURINOL) [Concomitant]
  6. SEPTRIN (SULFAMETHOXAZOLE, TRIMETHOPRIM) [Concomitant]
  7. DIHYDROCIDEUBE (DIHYDROCODEINE) [Concomitant]

REACTIONS (6)
  - Graft versus host disease [None]
  - Platelet count decreased [None]
  - Vomiting [None]
  - Neutropenic sepsis [None]
  - General physical health deterioration [None]
  - Device related infection [None]
